FAERS Safety Report 24049420 (Version 1)
Quarter: 2024Q3

REPORT INFORMATION
  Report Type: Spontaneous
  Country: IR (occurrence: IR)
  Receive Date: 20240704
  Receipt Date: 20240704
  Transmission Date: 20241017
  Serious: Yes (Life-Threatening, Hospitalization, Other)
  Sender: ALKEM
  Company Number: None

PATIENT
  Age: 45 Year
  Sex: Female
  Weight: 78 kg

DRUGS (1)
  1. IBUPROFEN [Suspect]
     Active Substance: IBUPROFEN
     Indication: Influenza like illness
     Dosage: 800 MILLIGRAM (SINGLE DOSE)
     Route: 065

REACTIONS (2)
  - Renal impairment [Recovering/Resolving]
  - Stevens-Johnson syndrome [Recovering/Resolving]
